FAERS Safety Report 19880345 (Version 1)
Quarter: 2021Q3

REPORT INFORMATION
  Report Type: Spontaneous
  Country: CN (occurrence: CN)
  Receive Date: 20210924
  Receipt Date: 20210924
  Transmission Date: 20211014
  Serious: Yes (Life-Threatening, Other)
  Sender: FDA-Public Use
  Company Number: CN-GE HEALTHCARE LIFE SCIENCES-2021CSU004690

PATIENT

DRUGS (3)
  1. OMNISCAN [Suspect]
     Active Substance: GADODIAMIDE
     Indication: MAGNETIC RESONANCE IMAGING
     Dosage: 20 ML, SINGLE
     Route: 040
     Dates: start: 20210913, end: 20210913
  2. OMNISCAN [Suspect]
     Active Substance: GADODIAMIDE
     Indication: LUNG NEOPLASM MALIGNANT
  3. OMNISCAN [Suspect]
     Active Substance: GADODIAMIDE
     Indication: METASTASES TO CENTRAL NERVOUS SYSTEM

REACTIONS (3)
  - Lethargy [Recovering/Resolving]
  - Loss of consciousness [Recovering/Resolving]
  - Dysphoria [Recovering/Resolving]

NARRATIVE: CASE EVENT DATE: 20210913
